FAERS Safety Report 23073300 (Version 1)
Quarter: 2023Q4

REPORT INFORMATION
  Report Type: Spontaneous
  Country: RU (occurrence: RU)
  Receive Date: 20231017
  Receipt Date: 20231017
  Transmission Date: 20240109
  Serious: Yes (Hospitalization)
  Sender: FDA-Public Use
  Company Number: RU-drreddys-LIT/RUS/23/0179698

PATIENT
  Age: 41 Year
  Sex: Male

DRUGS (6)
  1. OMEPRAZOLE [Suspect]
     Active Substance: OMEPRAZOLE
     Indication: Symptomatic treatment
  2. CIPROFLOXACIN [Suspect]
     Active Substance: CIPROFLOXACIN
     Indication: Symptomatic treatment
  3. PANCREATIN [Suspect]
     Active Substance: PANCRELIPASE
     Indication: Symptomatic treatment
  4. GLYCYRRHIZIN [Suspect]
     Active Substance: GLYCYRRHIZIN
     Indication: Symptomatic treatment
  5. FLUCONAZOLE [Suspect]
     Active Substance: FLUCONAZOLE
     Indication: Symptomatic treatment
  6. ALBUMIN HUMAN [Suspect]
     Active Substance: ALBUMIN HUMAN
     Indication: Symptomatic treatment

REACTIONS (6)
  - Hepatosplenomegaly [Recovering/Resolving]
  - Pericardial disease [Recovering/Resolving]
  - Pleural effusion [Recovering/Resolving]
  - Ascites [Recovering/Resolving]
  - Positron emission tomogram abnormal [Recovering/Resolving]
  - Condition aggravated [Recovering/Resolving]
